FAERS Safety Report 7275724-1 (Version None)
Quarter: 2011Q1

REPORT INFORMATION
  Report Type: 
  Country: None (occurrence: None)
  Receive Date: 20110202
  Receipt Date: 20110202
  Transmission Date: 20110831
  Serious: Yes (Other)
  Sender: FDA-Public Use
  Company Number: None

PATIENT
  Age: 87 Year
  Sex: Male
  Weight: 77.5651 kg

DRUGS (1)
  1. HYDROMORPHONE HCL [Suspect]
     Dosage: 1 TABLET Q4H PRN PO
     Route: 048
     Dates: start: 20110111, end: 20110125

REACTIONS (2)
  - LARYNGOSPASM [None]
  - DYSPHAGIA [None]
